FAERS Safety Report 12302293 (Version 1)
Quarter: 2016Q2

REPORT INFORMATION
  Report Type: Spontaneous
  Country: GR (occurrence: GR)
  Receive Date: 20160425
  Receipt Date: 20160425
  Transmission Date: 20160815
  Serious: Yes (Life-Threatening)
  Sender: FDA-Public Use
  Company Number: GR-PFIZER INC-2016227310

PATIENT
  Age: 76 Year
  Sex: Male
  Weight: 80 kg

DRUGS (3)
  1. BILARGEN [Concomitant]
     Dosage: 1 DF, 1X/DAY
     Route: 048
     Dates: start: 20160411, end: 20160411
  2. COAPROVEL [Concomitant]
     Active Substance: HYDROCHLOROTHIAZIDE\IRBESARTAN
     Dosage: 1 DF, 1X/DAY
     Route: 048
     Dates: start: 2013
  3. MEDROL [Suspect]
     Active Substance: METHYLPREDNISOLONE
     Indication: DERMATITIS
     Dosage: 16 MG, 2X/DAY
     Route: 048
     Dates: start: 20160411, end: 20160412

REACTIONS (5)
  - Flushing [Recovered/Resolved]
  - Blood pressure increased [Recovered/Resolved]
  - Palpitations [Recovered/Resolved]
  - Abdominal pain upper [Recovered/Resolved]
  - Headache [Recovered/Resolved]

NARRATIVE: CASE EVENT DATE: 20160411
